FAERS Safety Report 5282957-2 (Version None)
Quarter: 2007Q1

REPORT INFORMATION
  Report Type: 
  Country: None (occurrence: None)
  Receive Date: 20070328
  Receipt Date: 20070328
  Transmission Date: 20070707
  Serious: Yes (Other)
  Sender: FDA-Public Use
  Company Number: None

PATIENT
  Age: 53 Year
  Sex: Male
  Weight: 82.8 kg

DRUGS (9)
  1. MORPHINE [Suspect]
  2. DIATRIZOATE MEGLUMINE + SODIUM [Concomitant]
  3. CITALOPRAM HYDROBROMIDE [Concomitant]
  4. FOLIC ACID [Concomitant]
  5. MULTI-VITAMIN [Concomitant]
  6. THIAMINE HCL [Concomitant]
  7. FAMCICLOVIR [Concomitant]
  8. FLUNISOLIDE [Concomitant]
  9. ALOH/MGOH/SIMTH [Concomitant]

REACTIONS (1)
  - URTICARIA [None]
